FAERS Safety Report 13136521 (Version 2)
Quarter: 2017Q4

REPORT INFORMATION
  Report Type: Spontaneous
  Country: CA (occurrence: CA)
  Receive Date: 20170122
  Receipt Date: 20171130
  Transmission Date: 20180320
  Serious: Yes (Life-Threatening, Hospitalization, Other)
  Sender: FDA-Public Use
  Company Number: CA-ABBVIE-17K-028-1844154-00

PATIENT
  Age: 70 Year
  Sex: Male
  Weight: 120 kg

DRUGS (6)
  1. METHOTREXATE. [Concomitant]
     Active Substance: METHOTREXATE
     Indication: RHEUMATOID ARTHRITIS
  2. HUMIRA [Suspect]
     Active Substance: ADALIMUMAB
     Indication: RHEUMATOID ARTHRITIS
     Route: 058
     Dates: start: 2015, end: 20151021
  3. METFORMIN [Concomitant]
     Active Substance: METFORMIN HYDROCHLORIDE
     Indication: DIABETES MELLITUS
  4. LYRICA [Concomitant]
     Active Substance: PREGABALIN
     Indication: PAIN
  5. ENBREL [Suspect]
     Active Substance: ETANERCEPT
     Indication: RHEUMATOID ARTHRITIS
     Route: 058
     Dates: start: 201307, end: 201503
  6. LEFLUNOMIDE. [Suspect]
     Active Substance: LEFLUNOMIDE
     Indication: PRODUCT USED FOR UNKNOWN INDICATION
     Route: 065
     Dates: start: 2003, end: 20150404

REACTIONS (14)
  - Diabetes mellitus [Recovering/Resolving]
  - Exercise tolerance decreased [Recovering/Resolving]
  - Musculoskeletal disorder [Recovering/Resolving]
  - Rheumatoid arthritis [Recovering/Resolving]
  - Bone marrow failure [Recovering/Resolving]
  - Apparent death [Recovering/Resolving]
  - Pain [Recovering/Resolving]
  - Rash [Recovering/Resolving]
  - Drug interaction [Recovering/Resolving]
  - Inflammation [Recovering/Resolving]
  - Arthropathy [Recovering/Resolving]
  - Drug hypersensitivity [Recovering/Resolving]
  - Drug ineffective [Recovering/Resolving]
  - Oedema peripheral [Recovering/Resolving]
